FAERS Safety Report 9379805 (Version 3)
Quarter: 2013Q3

REPORT INFORMATION
  Report Type: Report from Study
  Country: US (occurrence: US)
  Receive Date: 20130702
  Receipt Date: 20130723
  Transmission Date: 20140515
  Serious: Yes (Hospitalization, Other)
  Sender: FDA-Public Use
  Company Number: US-CELGENEUS-163-21880-13064204

PATIENT
  Age: 63 Year
  Sex: Female
  Weight: 75.3 kg

DRUGS (16)
  1. REVLIMID [Suspect]
     Indication: PLASMA CELL MYELOMA
     Dosage: 25 MILLIGRAM
     Route: 048
     Dates: start: 20130218, end: 20130521
  2. BORTEZOMIB [Suspect]
     Indication: PLASMA CELL MYELOMA
     Dosage: 1.3 MILLIGRAM/SQ. METER
     Route: 058
     Dates: start: 20130319, end: 20130521
  3. DEXAMETHASONE [Suspect]
     Indication: PLASMA CELL MYELOMA
     Dosage: 40 MILLIGRAM
     Route: 048
     Dates: start: 20130218, end: 20130521
  4. ZOMETA [Suspect]
     Indication: PLASMA CELL MYELOMA
     Route: 065
  5. CALCIUM CARBONATE [Concomitant]
     Indication: BONE DISORDER
     Dosage: 400 UNIT
     Route: 048
     Dates: start: 20120405
  6. GLUCOSAMINE SULFATE [Concomitant]
     Indication: BONE DISORDER
     Dosage: 500 MILLIGRAM
     Route: 065
     Dates: start: 20120405
  7. HYDROCHLOROTHIAZIDE [Concomitant]
     Indication: HYPERTENSION
     Dosage: 25 MILLIGRAM
     Route: 065
     Dates: start: 20130122
  8. HYDROCODONE/ACETAMINOPHEN [Concomitant]
     Indication: PAIN
     Dosage: 5-325MG
     Route: 048
     Dates: start: 20130326
  9. LACTOBACILLUS COMBO NO. 6 [Concomitant]
     Indication: BOWEL MOVEMENT IRREGULARITY
     Route: 065
     Dates: start: 20130215
  10. LEVOTHYROXINE [Concomitant]
     Indication: HYPOTHYROIDISM
     Dosage: 75 MICROGRAM
     Route: 065
     Dates: start: 20120405
  11. LISINOPRIL [Concomitant]
     Indication: HYPERTENSION
     Dosage: 10 MILLIGRAM
     Route: 065
     Dates: start: 20120521
  12. MVI [Concomitant]
     Indication: VITAMIN SUPPLEMENTATION
     Route: 065
     Dates: start: 20120405
  13. BACTROBAN [Concomitant]
     Indication: RHINITIS
     Dosage: 4 PERCENT
     Route: 061
     Dates: start: 20130327
  14. BACTRIM DS [Concomitant]
     Indication: URINARY TRACT INFECTION
     Dosage: 800-160MG
     Route: 048
     Dates: start: 20130327
  15. VALTREX [Concomitant]
     Indication: PROPHYLAXIS
     Dosage: 500 MILLIGRAM
     Route: 065
     Dates: start: 20130319
  16. ASPIRIN [Concomitant]
     Indication: THROMBOSIS PROPHYLAXIS
     Dosage: 81 MILLIGRAM
     Route: 065
     Dates: start: 20130218

REACTIONS (10)
  - Mesenteric artery thrombosis [Recovered/Resolved]
  - Hypoalbuminaemia [Unknown]
  - Colitis ischaemic [Recovered/Resolved]
  - Neutropenia [Recovered/Resolved]
  - Anaemia [Recovered/Resolved]
  - Urinary retention [Recovered/Resolved]
  - Rectal haemorrhage [Recovered/Resolved]
  - Hypocalcaemia [Recovered/Resolved]
  - Platelet count decreased [Recovered/Resolved]
  - Thrombophlebitis [Recovered/Resolved]
